FAERS Safety Report 5010580-3 (Version None)
Quarter: 2006Q2

REPORT INFORMATION
  Report Type: 
  Country: None (occurrence: None)
  Receive Date: 20060524
  Receipt Date: 20060524
  Transmission Date: 20061013
  Serious: Yes (Other)
  Sender: FDA-Public Use
  Company Number: None

PATIENT
  Age: 46 Year
  Sex: Female
  Weight: 58.9676 kg

DRUGS (2)
  1. EFFEXOR XR [Suspect]
     Indication: DEPRESSION
     Dosage: 1 CAPSULE DAILY PO
     Route: 048
     Dates: start: 20021101, end: 20050618
  2. SYNTHROID [Concomitant]

REACTIONS (6)
  - CONDITION AGGRAVATED [None]
  - CRYING [None]
  - DRUG WITHDRAWAL SYNDROME [None]
  - FATIGUE [None]
  - STRESS AT WORK [None]
  - SUICIDAL IDEATION [None]
